FAERS Safety Report 12238057 (Version 1)
Quarter: 2016Q2

REPORT INFORMATION
  Report Type: Spontaneous
  Country: US (occurrence: None)
  Receive Date: 20160404
  Receipt Date: 20160404
  Transmission Date: 20160815
  Serious: No
  Sender: FDA-Public Use
  Company Number: None

PATIENT
  Age: 2 Year
  Sex: Male

DRUGS (9)
  1. POLYETHYLENE GLYCOL [Concomitant]
     Active Substance: POLYETHYLENE GLYCOLS
  2. FOLIC ACID. [Concomitant]
     Active Substance: FOLIC ACID
  3. PENICILLIN [Concomitant]
     Active Substance: PENICILLIN
  4. AZITHROMYCIN ANHYDROUS. [Concomitant]
     Active Substance: AZITHROMYCIN ANHYDROUS
  5. ONDANSETRON [Concomitant]
     Active Substance: ONDANSETRON
  6. AMOXICILLIN. [Concomitant]
     Active Substance: AMOXICILLIN
  7. PREDNISOLONE. [Concomitant]
     Active Substance: PREDNISOLONE
  8. PERMETHRIN. [Concomitant]
     Active Substance: PERMETHRIN
  9. EXJADE [Suspect]
     Active Substance: DEFERASIROX
     Indication: SICKLE CELL ANAEMIA
     Route: 048
     Dates: start: 20160218

REACTIONS (2)
  - Diarrhoea [None]
  - Decreased appetite [None]

NARRATIVE: CASE EVENT DATE: 201603
